FAERS Safety Report 7843562-4 (Version None)
Quarter: 2011Q4

REPORT INFORMATION
  Report Type: 
  Country: None (occurrence: None)
  Receive Date: 20111025
  Receipt Date: 20111018
  Transmission Date: 20120403
  Serious: Yes (Hospitalization)
  Sender: FDA-Public Use
  Company Number: NL-AMGEN-NLDSP2011053927

PATIENT
  Age: 63 Year
  Sex: Male
  Weight: 74.4 kg

DRUGS (2)
  1. VECTIBIX [Suspect]
     Indication: COLON CANCER
     Dosage: 20 MG/ML, UNK
     Dates: start: 20110923
  2. ANTINEOPLASTIC AGENTS [Concomitant]
     Indication: COLON CANCER

REACTIONS (1)
  - PANCREATITIS [None]
